FAERS Safety Report 12461113 (Version 1)
Quarter: 2016Q2

REPORT INFORMATION
  Report Type: Spontaneous
  Country: GB (occurrence: GB)
  Receive Date: 20160613
  Receipt Date: 20160613
  Transmission Date: 20160815
  Serious: Yes (Hospitalization)
  Sender: FDA-Public Use
  Company Number: GB-TEVA-666220ACC

PATIENT
  Age: 62 Year
  Sex: Female

DRUGS (3)
  1. LOPERAMIDE [Concomitant]
     Active Substance: LOPERAMIDE
     Route: 048
  2. VALSARTAN. [Suspect]
     Active Substance: VALSARTAN
     Indication: HYPERTENSION
     Dosage: 40 MILLIGRAM DAILY; EVERY MORNING
  3. ADALAT [Suspect]
     Active Substance: NIFEDIPINE
     Dosage: 60 MILLIGRAM DAILY;

REACTIONS (6)
  - Diarrhoea [Unknown]
  - Dehydration [Unknown]
  - Acute kidney injury [Recovered/Resolved]
  - Duodenal ulcer [Recovering/Resolving]
  - Gastrointestinal stoma complication [Unknown]
  - Duodenitis [Unknown]

NARRATIVE: CASE EVENT DATE: 20160503
